FAERS Safety Report 23335204 (Version 2)
Quarter: 2023Q4

REPORT INFORMATION
  Report Type: Spontaneous
  Country: US (occurrence: US)
  Receive Date: 20231225
  Receipt Date: 20231227
  Transmission Date: 20240110
  Serious: No
  Sender: FDA-Public Use
  Company Number: US-AMGEN-USASP2023229692

PATIENT
  Sex: Female

DRUGS (3)
  1. OTEZLA [Suspect]
     Active Substance: APREMILAST
     Indication: Psoriasis
     Dosage: 30 MILLIGRAM, BID
     Route: 048
  2. NAPROXEN [Concomitant]
     Active Substance: NAPROXEN
  3. MELOXICAM [Concomitant]
     Active Substance: MELOXICAM

REACTIONS (1)
  - Therapy non-responder [Unknown]
